FAERS Safety Report 13185040 (Version 2)
Quarter: 2017Q1

REPORT INFORMATION
  Report Type: Spontaneous
  Country: DE (occurrence: DE)
  Receive Date: 20170203
  Receipt Date: 20170313
  Transmission Date: 20170428
  Serious: Yes (Death, Hospitalization, Other)
  Sender: FDA-Public Use
  Company Number: DE-GILEAD-2017-0256571

PATIENT
  Age: 50 Year
  Sex: Female

DRUGS (1)
  1. ZYDELIG [Suspect]
     Active Substance: IDELALISIB
     Indication: B-CELL LYMPHOMA
     Dosage: RECENTLY RECEIVED ZYDELIG FOR A SHORT PERIOD OF TIME
     Route: 065

REACTIONS (3)
  - Cytomegalovirus infection [Unknown]
  - Pneumonitis [Fatal]
  - Sepsis [Fatal]
